FAERS Safety Report 9135542 (Version 2)
Quarter: 2013Q2

REPORT INFORMATION
  Report Type: Spontaneous
  Country: FR (occurrence: FR)
  Receive Date: 20130304
  Receipt Date: 20130610
  Transmission Date: 20140414
  Serious: Yes (Life-Threatening)
  Sender: FDA-Public Use
  Company Number: FR-ASTRAZENECA-2013SE13318

PATIENT
  Age: 81 Year
  Sex: Male

DRUGS (11)
  1. ATACAND [Suspect]
     Route: 048
     Dates: start: 2011, end: 201211
  2. ATACAND [Suspect]
     Route: 048
     Dates: start: 20121221, end: 201302
  3. LASILIX [Concomitant]
  4. AMIODARONE [Concomitant]
  5. KARDEGIC [Concomitant]
  6. PLAVIX [Concomitant]
  7. LEVOTHYROX [Concomitant]
  8. TAHOR [Concomitant]
  9. NOVONORM [Concomitant]
  10. PULMICORT [Concomitant]
  11. LONG LASTING CARDIOLOGICAL TREATMENTS [Concomitant]
     Dates: start: 2007

REACTIONS (1)
  - Laryngeal oedema [Recovered/Resolved with Sequelae]
